FAERS Safety Report 5605145-6 (Version None)
Quarter: 2008Q1

REPORT INFORMATION
  Report Type: 
  Country: None (occurrence: None)
  Receive Date: 20080123
  Receipt Date: 20080111
  Transmission Date: 20080703
  Serious: Yes (Hospitalization)
  Sender: FDA-Public Use
  Company Number: NF011008

PATIENT
  Age: 58 Year
  Sex: Female

DRUGS (4)
  1. NALFON [Suspect]
     Indication: PLANTAR FASCIITIS
     Dosage: 200MG BID PO
     Route: 048
     Dates: start: 20080105, end: 20080107
  2. METFORMIN HYDROCHLORIDE [Concomitant]
  3. ROLAXIFENE(EVISTA) [Concomitant]
  4. ACIPHEX [Concomitant]

REACTIONS (6)
  - ANXIETY [None]
  - BLOOD PRESSURE DECREASED [None]
  - BODY TEMPERATURE DECREASED [None]
  - STRESS [None]
  - SYNCOPE [None]
  - VOMITING [None]
